FAERS Safety Report 7406697-6 (Version None)
Quarter: 2011Q2

REPORT INFORMATION
  Report Type: 
  Country: None (occurrence: None)
  Receive Date: 20110411
  Receipt Date: 20110401
  Transmission Date: 20111010
  Serious: Yes (Other)
  Sender: FDA-Public Use
  Company Number: GB-ASTRAZENECA-2011SE18561

PATIENT
  Sex: Female

DRUGS (2)
  1. BUDESONIDE [Suspect]
     Dosage: 0.5 MG / 2 ML,
     Route: 055
  2. BUDESONIDE [Suspect]
     Dosage: 0.5 MG / 2 ML,
     Route: 045

REACTIONS (4)
  - RHINALGIA [None]
  - EPISTAXIS [None]
  - DRUG ADMINISTRATION ERROR [None]
  - NASAL INFLAMMATION [None]
